FAERS Safety Report 6076949-3 (Version None)
Quarter: 2009Q1

REPORT INFORMATION
  Report Type: 
  Country: None (occurrence: None)
  Receive Date: 20090213
  Receipt Date: 20090130
  Transmission Date: 20090719
  Serious: Yes (Other)
  Sender: FDA-Public Use
  Company Number: US-ROCHE-526159

PATIENT
  Sex: Female
  Weight: 67.6 kg

DRUGS (8)
  1. PEG-INTERFERON A-2A (RO 25-8310) [Suspect]
     Indication: HEPATITIS C
     Dosage: FORM: PRE-FILLED SYRINGE.
     Route: 058
     Dates: start: 20070919, end: 20080421
  2. RIBAVIRIN [Suspect]
     Indication: HEPATITIS C
     Dosage: FREQUENCY: 600 MG AM, 400 MG PM
     Route: 048
     Dates: start: 20070919, end: 20080421
  3. CHLORPROMAZINE [Suspect]
     Indication: DRUG USE FOR UNKNOWN INDICATION
     Route: 065
  4. UNSPECIFIED MEDICATION [Concomitant]
     Indication: MIGRAINE
  5. XANAX [Concomitant]
  6. LISINOPRIL [Concomitant]
     Indication: BLOOD PRESSURE
  7. LISINOPRIL [Concomitant]
     Dosage: DOSE REDUCED TO HALF.
  8. PAROXETINE HCL [Concomitant]
     Indication: ANXIETY

REACTIONS (41)
  - ABDOMINAL DISTENSION [None]
  - ABDOMINAL PAIN [None]
  - ABNORMAL BEHAVIOUR [None]
  - ALOPECIA [None]
  - AMNESIA [None]
  - ANAEMIA [None]
  - ANGER [None]
  - BALANCE DISORDER [None]
  - BIPOLAR DISORDER [None]
  - BLINDNESS [None]
  - BRADYPHRENIA [None]
  - BRONCHITIS [None]
  - CEREBROVASCULAR ACCIDENT [None]
  - DECREASED APPETITE [None]
  - DEPRESSION [None]
  - DIARRHOEA [None]
  - DRUG HYPERSENSITIVITY [None]
  - DRY MOUTH [None]
  - DYSPNOEA [None]
  - FALL [None]
  - FATIGUE [None]
  - HYPOTENSION [None]
  - INJECTION SITE IRRITATION [None]
  - INSOMNIA [None]
  - IRRITABILITY [None]
  - MENINGITIS [None]
  - MIGRAINE WITH AURA [None]
  - MOOD SWINGS [None]
  - MUSCLE SPASMS [None]
  - NAUSEA [None]
  - NERVOUSNESS [None]
  - OEDEMA [None]
  - PAIN [None]
  - PERSONALITY DISORDER [None]
  - ROAD TRAFFIC ACCIDENT [None]
  - SKIN DISORDER [None]
  - URINARY INCONTINENCE [None]
  - VISUAL IMPAIRMENT [None]
  - VOMITING [None]
  - WEIGHT DECREASED [None]
  - WEIGHT INCREASED [None]
